FAERS Safety Report 6714277-0 (Version None)
Quarter: 2010Q2

REPORT INFORMATION
  Report Type: 
  Country: None (occurrence: None)
  Receive Date: 20100506
  Receipt Date: 20100104
  Transmission Date: 20101027
  Serious: No
  Sender: FDA-Public Use
  Company Number: US-BAUSCH-2010BL000070

PATIENT
  Age: 68 Year
  Sex: Female

DRUGS (2)
  1. LOTEMAX [Suspect]
     Indication: KERATOCONJUNCTIVITIS SICCA
     Dates: end: 20091230
  2. ZYLET (LOTEPREDNOL ETABONATE 0.5% AND TOBRA 0.3% OPHTH SUSP) [Suspect]
     Indication: DRUG USE FOR UNKNOWN INDICATION
     Dates: end: 20091230

REACTIONS (1)
  - PUNCTATE KERATITIS [None]
